FAERS Safety Report 6343189-X (Version None)
Quarter: 2009Q3

REPORT INFORMATION
  Report Type: 
  Country: None (occurrence: None)
  Receive Date: 20090903
  Receipt Date: 20090820
  Transmission Date: 20100115
  Serious: Yes (Hospitalization)
  Sender: FDA-Public Use
  Company Number: MPS1-10738

PATIENT
  Age: 59 Year
  Sex: Male
  Weight: 54 kg

DRUGS (5)
  1. ALDURAZYME [Suspect]
     Indication: MUCOPOLYSACCHARIDOSIS I
     Dosage: 31.9 MG, INTRAVENOUS
     Route: 042
     Dates: start: 20070517
  2. HYDROXYZINE HCL [Concomitant]
  3. WARFARIN SODIUM [Concomitant]
  4. FUROSEMIDE [Concomitant]
  5. TRIAZOLAM [Concomitant]

REACTIONS (2)
  - CEREBRAL INFARCTION [None]
  - DEHYDRATION [None]
